FAERS Safety Report 8762781 (Version 2)
Quarter: 2012Q4

REPORT INFORMATION
  Report Type: 
  Country: US (occurrence: US)
  Receive Date: 20120830
  Receipt Date: 20120917
  Transmission Date: 20130627
  Serious: Yes (Hospitalization)
  Sender: FDA-Public Use
  Company Number: US-PFIZER INC-2012209824

PATIENT
  Age: 95 Year
  Sex: Female
  Weight: 46.26 kg

DRUGS (16)
  1. VANCOMYCIN HCL [Suspect]
     Indication: ENDOCARDITIS
     Dosage: 500 mg
     Route: 042
     Dates: start: 20110829, end: 20111018
  2. VANCOMYCIN HCL [Suspect]
     Indication: INFECTION
     Dosage: 500 mg
     Route: 042
     Dates: start: 201110, end: 201110
  3. LEVAQUIN [Suspect]
     Indication: METAL POISONING
     Dosage: UNK
     Dates: start: 20111018, end: 201207
  4. LEVAQUIN [Suspect]
     Indication: ENDOCARDITIS
  5. ASPIRIN [Concomitant]
     Dosage: 81 mg
  6. INSULIN [Concomitant]
     Dosage: UNK
  7. CALCIUM/VITAMIN D [Concomitant]
     Dosage: UNK
  8. FOLIC ACID [Concomitant]
     Dosage: 0.4 mg, 1x/day
  9. LASIX [Concomitant]
     Dosage: 40 mg
  10. METOPROLOL [Concomitant]
     Dosage: 50 mg, 1x/day
  11. POTASSIUM [Concomitant]
     Dosage: 10 mEq, 1x/day
  12. VALSARTAN [Concomitant]
     Dosage: 80 mg, 1x/day
  13. CO-Q-10 [Concomitant]
     Dosage: 100 mg, 2x/day
  14. HUMULIN [Concomitant]
     Dosage: 70/30, 3 units, two times a day
  15. LIDODERM [Concomitant]
     Dosage: 700 mg, 1x/day
  16. MULTIVITAMINS [Concomitant]
     Dosage: once a day

REACTIONS (1)
  - Drug ineffective [Unknown]
